FAERS Safety Report 9961802 (Version 1)
Quarter: 2014Q1

REPORT INFORMATION
  Report Type: Report from Study
  Country: US (occurrence: US)
  Receive Date: 20140305
  Receipt Date: 20140305
  Transmission Date: 20141002
  Serious: No
  Sender: FDA-Public Use
  Company Number: US-ABBVIE-13P-163-1113369-00

PATIENT
  Sex: Male
  Weight: 136.65 kg

DRUGS (5)
  1. HUMIRA [Suspect]
     Indication: PSORIATIC ARTHROPATHY
     Route: 058
     Dates: start: 2010
  2. CYMBALTA [Concomitant]
     Indication: ANXIETY
  3. HYDROCODONE [Concomitant]
     Indication: PRODUCT USED FOR UNKNOWN INDICATION
  4. PROVIGIL [Concomitant]
     Indication: PRODUCT USED FOR UNKNOWN INDICATION
  5. TRAZODONE [Concomitant]
     Indication: PRODUCT USED FOR UNKNOWN INDICATION

REACTIONS (3)
  - Musculoskeletal pain [Recovering/Resolving]
  - Arthralgia [Not Recovered/Not Resolved]
  - Pain [Not Recovered/Not Resolved]
